FAERS Safety Report 16338211 (Version 1)
Quarter: 2019Q2

REPORT INFORMATION
  Report Type: Report from Study
  Country: CA (occurrence: CA)
  Receive Date: 20190521
  Receipt Date: 20190521
  Transmission Date: 20190711
  Serious: Yes (Hospitalization, Other)
  Sender: FDA-Public Use
  Company Number: CA-JNJFOC-20190516368

PATIENT
  Age: 35 Year
  Sex: Male
  Weight: 98.6 kg

DRUGS (1)
  1. REMICADE [Suspect]
     Active Substance: INFLIXIMAB
     Indication: ANKYLOSING SPONDYLITIS
     Dosage: STRENGTH = 400 MG
     Route: 042

REACTIONS (3)
  - Bacteraemia [Unknown]
  - Lymphadenopathy [Unknown]
  - Intestinal resection [Unknown]

NARRATIVE: CASE EVENT DATE: 201904
